FAERS Safety Report 25171548 (Version 1)
Quarter: 2025Q2

REPORT INFORMATION
  Report Type: Spontaneous
  Country: CN (occurrence: CN)
  Receive Date: 20250408
  Receipt Date: 20250408
  Transmission Date: 20250716
  Serious: Yes (Other)
  Sender: JIANGSU HENGRUI
  Company Number: CN-JIANGSU HENGRUI PHARMACEUTICALS CO., LTD.-H2025208509

PATIENT
  Age: 55 Year

DRUGS (1)
  1. OXALIPLATIN [Suspect]
     Active Substance: OXALIPLATIN
     Indication: Rectal cancer

REACTIONS (3)
  - Hyperhidrosis [Recovered/Resolved]
  - Anal pruritus [Recovered/Resolved]
  - Defaecation urgency [Recovered/Resolved]
